FAERS Safety Report 6862661-7 (Version None)
Quarter: 2010Q3

REPORT INFORMATION
  Report Type: 
  Country: None (occurrence: None)
  Receive Date: 20100721
  Receipt Date: 20100712
  Transmission Date: 20110219
  Serious: Yes (Hospitalization, Other)
  Sender: FDA-Public Use
  Company Number: US-ROCHE-690095

PATIENT
  Sex: Male
  Weight: 116.5 kg

DRUGS (9)
  1. MYCOPHENOLATE MOFETIL [Suspect]
     Route: 048
     Dates: start: 20080501, end: 20090502
  2. CP-690550 [Suspect]
     Route: 048
     Dates: start: 20080501, end: 20090502
  3. PREDNISONE [Suspect]
     Route: 048
     Dates: start: 20080504, end: 20090429
  4. METOPROLOL [Concomitant]
     Dates: start: 20030101
  5. NORVASC [Concomitant]
     Dates: start: 20030101
  6. COLACE [Concomitant]
     Dates: start: 20080501
  7. NOVOLOG [Concomitant]
     Dates: start: 20030101
  8. LASIX [Concomitant]
     Dates: start: 20090429
  9. LANTUS [Concomitant]
     Dates: end: 20090205

REACTIONS (2)
  - HUMAN POLYOMAVIRUS INFECTION [None]
  - KIDNEY TRANSPLANT REJECTION [None]
